FAERS Safety Report 7703271-9 (Version None)
Quarter: 2011Q3

REPORT INFORMATION
  Report Type: 
  Country: None (occurrence: None)
  Receive Date: 20110817
  Receipt Date: 20110807
  Transmission Date: 20111222
  Serious: Yes (Hospitalization)
  Sender: FDA-Public Use
  Company Number: 1009657

PATIENT
  Age: 73 Year
  Sex: Female

DRUGS (1)
  1. DEMEROL [Suspect]
     Indication: PRODUCT USED FOR UNKNOWN INDICATION
     Dosage: 25 MG START DOSE, SLOW IV
     Route: 042
     Dates: start: 20110624

REACTIONS (2)
  - RESPIRATORY DEPRESSION [None]
  - DEPRESSED LEVEL OF CONSCIOUSNESS [None]
